FAERS Safety Report 23980300 (Version 2)
Quarter: 2024Q3

REPORT INFORMATION
  Report Type: Spontaneous
  Country: DE (occurrence: DE)
  Receive Date: 20240617
  Receipt Date: 20240823
  Transmission Date: 20241016
  Serious: Yes (Other)
  Sender: ROCHE
  Company Number: None

PATIENT
  Age: 83 Year
  Sex: Female
  Weight: 61 kg

DRUGS (19)
  1. TOCILIZUMAB [Suspect]
     Active Substance: TOCILIZUMAB
     Indication: Rheumatoid arthritis
     Route: 058
     Dates: start: 20230911, end: 20231211
  2. RAMIPRIL [Concomitant]
     Active Substance: RAMIPRIL
     Dosage: 0.5-0-0.5
     Route: 065
  3. PREDNISOLONE [Concomitant]
     Active Substance: PREDNISOLONE
     Indication: Giant cell arteritis
     Dosage: JEDEN 2. TAG
     Route: 065
  4. ELIQUIS [Concomitant]
     Active Substance: APIXABAN
     Dosage: 5 MG 1-0-1-0
     Route: 065
  5. ELIQUIS [Concomitant]
     Active Substance: APIXABAN
     Dosage: 5 MG 1-0-1-0
  6. PREDNISOLONE [Concomitant]
     Active Substance: PREDNISOLONE
     Indication: Giant cell arteritis
     Dosage: JEDEN 2. TAG
  7. CHOLECALCIFEROL [Concomitant]
     Active Substance: CHOLECALCIFEROL
     Dosage: AM 1. UND 15. JEDEN MONATS 1 TBL.
     Route: 065
  8. AMLODIPINE BESYLATE [Concomitant]
     Active Substance: AMLODIPINE BESYLATE
  9. METOPROLOL SUCCINATE [Concomitant]
     Active Substance: METOPROLOL SUCCINATE
     Dosage: 47.5 MG 1-0-1
     Route: 065
  10. METOPROLOL SUCCINATE [Concomitant]
     Active Substance: METOPROLOL SUCCINATE
     Dosage: 47.5 MG 1-0-1
  11. RAMIPRIL [Concomitant]
     Active Substance: RAMIPRIL
     Dosage: 0.5-0-0.5
  12. LEQVIO [Concomitant]
     Active Substance: INCLISIRAN SODIUM
     Dosage: 284 MG/1.5 ML SOLUTION
     Route: 065
  13. LEQVIO [Concomitant]
     Active Substance: INCLISIRAN SODIUM
  14. PANTOPRAZOLE SODIUM [Concomitant]
     Active Substance: PANTOPRAZOLE SODIUM
     Route: 065
  15. PROLIA [Concomitant]
     Active Substance: DENOSUMAB
     Dosage: 60 MG/ML ALLE 6 MONATE
     Route: 058
  16. PROLIA [Concomitant]
     Active Substance: DENOSUMAB
     Dosage: 60 MG/ML ALLE 6 MONATE
  17. PANTOPRAZOLE SODIUM [Concomitant]
     Active Substance: PANTOPRAZOLE SODIUM
  18. FOLIC ACID [Concomitant]
     Active Substance: FOLIC ACID
     Route: 065
  19. FOLIC ACID [Concomitant]
     Active Substance: FOLIC ACID

REACTIONS (5)
  - Dermatitis [Unknown]
  - Rash [Unknown]
  - Hypersensitivity [Unknown]
  - Dermatitis bullous [Unknown]
  - Pruritus [Unknown]
